FAERS Safety Report 10045062 (Version 2)
Quarter: 2014Q2

REPORT INFORMATION
  Report Type: Spontaneous
  Country: US (occurrence: US)
  Receive Date: 20140328
  Receipt Date: 20140401
  Transmission Date: 20141212
  Serious: No
  Sender: FDA-Public Use
  Company Number: US-GILEAD-2014-0098159

PATIENT
  Sex: Female

DRUGS (2)
  1. LETAIRIS [Suspect]
     Indication: PRODUCT USED FOR UNKNOWN INDICATION
     Dosage: 10 MG, QD
     Route: 048
     Dates: start: 20130801
  2. TYVASO [Concomitant]

REACTIONS (6)
  - Decreased appetite [Unknown]
  - Dry mouth [Unknown]
  - Cough [Unknown]
  - Influenza [Unknown]
  - Nasopharyngitis [Unknown]
  - Vomiting [Unknown]
